FAERS Safety Report 25129536 (Version 2)
Quarter: 2025Q2

REPORT INFORMATION
  Report Type: Other
  Country: US (occurrence: US)
  Receive Date: 20250327
  Receipt Date: 20250407
  Transmission Date: 20250716
  Serious: Yes (Life-Threatening)
  Sender: BIOCON
  Company Number: US-MLMSERVICE-20250310-PI440975-00147-1

PATIENT

DRUGS (5)
  1. PEGFILGRASTIM [Suspect]
     Active Substance: PEGFILGRASTIM
     Indication: Prophylaxis
     Route: 065
     Dates: start: 20240408
  2. PEGFILGRASTIM [Suspect]
     Active Substance: PEGFILGRASTIM
     Indication: Febrile neutropenia
  3. PEGFILGRASTIM [Suspect]
     Active Substance: PEGFILGRASTIM
     Indication: Febrile neutropenia
  4. AZACITIDINE [Concomitant]
     Active Substance: AZACITIDINE
     Indication: Blast cell crisis
     Route: 065
  5. VENETOCLAX [Concomitant]
     Active Substance: VENETOCLAX
     Indication: Blast cell crisis
     Route: 065

REACTIONS (1)
  - Splenic infarction [Recovering/Resolving]

NARRATIVE: CASE EVENT DATE: 20240410
